FAERS Safety Report 6257414-7 (Version None)
Quarter: 2009Q3

REPORT INFORMATION
  Report Type: 
  Country: None (occurrence: None)
  Receive Date: 20090706
  Receipt Date: 20090625
  Transmission Date: 20100115
  Serious: Yes (Hospitalization, Disabling, Other)
  Sender: FDA-Public Use
  Company Number: US-MERCK-0707USA04998

PATIENT
  Age: 53 Year
  Sex: Female

DRUGS (9)
  1. FOSAMAX [Suspect]
     Indication: OSTEOPENIA
     Route: 048
     Dates: start: 20010101, end: 20050519
  2. FOSAMAX [Suspect]
     Route: 048
     Dates: start: 20000701, end: 20050519
  3. FOSAMAX [Suspect]
     Indication: OSTEOPOROSIS
     Route: 048
     Dates: start: 20010101, end: 20050519
  4. FOSAMAX [Suspect]
     Route: 048
     Dates: start: 20000701, end: 20050519
  5. CLINDAMYCIN [Suspect]
     Route: 065
  6. LOVENOX [Suspect]
     Route: 065
  7. LEVAQUIN [Suspect]
     Route: 065
  8. COUMADIN [Suspect]
     Route: 065
  9. ZOCOR [Suspect]
     Route: 048

REACTIONS (58)
  - ABSCESS [None]
  - ADVERSE DRUG REACTION [None]
  - ANGINA PECTORIS [None]
  - ANIMAL BITE [None]
  - ANXIETY [None]
  - APHTHOUS STOMATITIS [None]
  - CANDIDIASIS [None]
  - CARDIOVASCULAR DISORDER [None]
  - CELLULITIS [None]
  - CONTUSION [None]
  - CONVULSION [None]
  - COUGH [None]
  - CYSTITIS [None]
  - DEAFNESS [None]
  - DEEP VEIN THROMBOSIS [None]
  - DELIRIUM [None]
  - DEMENTIA [None]
  - DENTAL NECROSIS [None]
  - DIASTOLIC DYSFUNCTION [None]
  - DRUG HYPERSENSITIVITY [None]
  - DRUG TOXICITY [None]
  - DYSPHAGIA [None]
  - FALL [None]
  - FUNGAL INFECTION [None]
  - FUNGAL SKIN INFECTION [None]
  - GOUT [None]
  - HERPES SIMPLEX [None]
  - HYPERCOAGULATION [None]
  - HYPERGLYCAEMIA [None]
  - HYPOKALAEMIA [None]
  - HYPOTHYROIDISM [None]
  - IMPAIRED HEALING [None]
  - INFLUENZA [None]
  - LIGAMENT RUPTURE [None]
  - LOSS OF CONSCIOUSNESS [None]
  - LYMPHADENOPATHY [None]
  - LYMPHANGITIS [None]
  - MIGRAINE [None]
  - MYELODYSPLASTIC SYNDROME [None]
  - MYOCARDIAL ISCHAEMIA [None]
  - OPEN WOUND [None]
  - ORAL INFECTION [None]
  - OROPHARYNGEAL PAIN [None]
  - OSTEOARTHRITIS [None]
  - OSTEOMYELITIS CHRONIC [None]
  - OSTEONECROSIS [None]
  - PAIN IN EXTREMITY [None]
  - PHLEBITIS [None]
  - REFLUX OESOPHAGITIS [None]
  - SCIATICA [None]
  - SEROMA [None]
  - SIALOADENITIS [None]
  - TEMPOROMANDIBULAR JOINT SYNDROME [None]
  - TINNITUS [None]
  - TOOTH INFECTION [None]
  - TYPE 2 DIABETES MELLITUS [None]
  - URINARY TRACT INFECTION [None]
  - WHEEZING [None]
